FAERS Safety Report 5705096-2 (Version None)
Quarter: 2008Q2

REPORT INFORMATION
  Report Type: 
  Country: None (occurrence: None)
  Receive Date: 20080410
  Receipt Date: 20080328
  Transmission Date: 20081010
  Serious: Yes (Other)
  Sender: FDA-Public Use
  Company Number: 233070J08USA

PATIENT
  Age: 60 Year
  Sex: Female

DRUGS (8)
  1. REBIF [Suspect]
     Indication: MULTIPLE SCLEROSIS
     Dosage: 44 MCG, 3 IN 1 WEEKS, SUBCUTANEOUS
     Route: 058
     Dates: start: 20070727
  2. NEURONTIN [Concomitant]
  3. CYMBALTA [Concomitant]
  4. SKELAXIN [Concomitant]
  5. NIASPAN [Concomitant]
  6. ASPIRIN [Concomitant]
  7. PRILOSEC [Concomitant]
  8. ALEVE (CAPLET) [Concomitant]

REACTIONS (7)
  - BALANCE DISORDER [None]
  - CONDITION AGGRAVATED [None]
  - GASTROOESOPHAGEAL REFLUX DISEASE [None]
  - HYPERTENSION [None]
  - MULTIPLE SCLEROSIS [None]
  - MYALGIA [None]
  - RETINAL HAEMORRHAGE [None]
